FAERS Safety Report 8603398-3 (Version None)
Quarter: 2012Q3

REPORT INFORMATION
  Report Type: 
  Country: None (occurrence: None)
  Receive Date: 20120817
  Receipt Date: 20120531
  Transmission Date: 20120928
  Serious: No
  Sender: FDA-Public Use
  Company Number: US-PFIZER INC-2012200597

PATIENT
  Age: 79 Year
  Sex: Male

DRUGS (2)
  1. VIAGRA [Suspect]
     Dosage: 100 MG, UNK
  2. VIAGRA [Suspect]
     Dosage: 50 MG, UNK

REACTIONS (1)
  - DRUG EFFECT DECREASED [None]
